FAERS Safety Report 18078439 (Version 2)
Quarter: 2020Q3

REPORT INFORMATION
  Report Type: Spontaneous
  Country: GB (occurrence: GB)
  Receive Date: 20200728
  Receipt Date: 20200812
  Transmission Date: 20201103
  Serious: Yes (Death, Life-Threatening, Hospitalization, Other)
  Sender: FDA-Public Use
  Company Number: GB-ACCORD-193080

PATIENT
  Age: 59 Year
  Sex: Female
  Weight: 108 kg

DRUGS (7)
  1. ATORVASTATIN [Concomitant]
     Active Substance: ATORVASTATIN
  2. GLICLAZIDE [Concomitant]
     Active Substance: GLICLAZIDE
  3. BETAHISTINE [Concomitant]
     Active Substance: BETAHISTINE
  4. LISINOPRIL. [Suspect]
     Active Substance: LISINOPRIL
     Indication: DIABETIC NEPHROPATHY
  5. PROCHLORPERAZINE. [Concomitant]
     Active Substance: PROCHLORPERAZINE
  6. METFORMIN [Concomitant]
     Active Substance: METFORMIN HYDROCHLORIDE
  7. PAROXETINE. [Concomitant]
     Active Substance: PAROXETINE

REACTIONS (6)
  - Cholestasis [Fatal]
  - Hepatitis fulminant [Fatal]
  - Portal fibrosis [Fatal]
  - Hepatic steatosis [Fatal]
  - Drug-induced liver injury [Fatal]
  - Hepatic fibrosis [Fatal]
